FAERS Safety Report 8078243-8 (Version None)
Quarter: 2012Q1

REPORT INFORMATION
  Report Type: 
  Country: None (occurrence: None)
  Receive Date: 20120127
  Receipt Date: 20110118
  Transmission Date: 20120608
  Serious: No
  Sender: FDA-Public Use
  Company Number: PR-ABBOTT-11P-131-0698935-00

PATIENT
  Sex: Female
  Weight: 58.112 kg

DRUGS (3)
  1. LEVOTHROID [Concomitant]
     Indication: HYPOTHYROIDISM
     Route: 048
  2. HUMIRA [Suspect]
     Indication: RHEUMATOID ARTHRITIS
     Route: 058
  3. COZAAR [Concomitant]
     Indication: PROTEINURIA
     Route: 048

REACTIONS (2)
  - DIZZINESS [None]
  - INAPPROPRIATE SCHEDULE OF DRUG ADMINISTRATION [None]
